FAERS Safety Report 18992317 (Version 2)
Quarter: 2021Q1

REPORT INFORMATION
  Report Type: Spontaneous
  Country: AU (occurrence: AU)
  Receive Date: 20210310
  Receipt Date: 20210319
  Transmission Date: 20210420
  Serious: Yes (Hospitalization)
  Sender: FDA-Public Use
  Company Number: AU-BAUSCH-BL-2021-007296

PATIENT
  Age: 45 Year
  Sex: Male

DRUGS (6)
  1. PREDNISOLONE. [Concomitant]
     Active Substance: PREDNISOLONE
     Indication: CROHN^S DISEASE
     Dosage: FROM DIAGNOSIS
     Route: 048
  2. MESALAZINE [Suspect]
     Active Substance: MESALAMINE
     Dosage: RESTARTED
     Route: 065
  3. PREDNISOLONE. [Concomitant]
     Active Substance: PREDNISOLONE
     Dosage: AT PRESENTATION
     Route: 048
  4. PREDNISOLONE. [Concomitant]
     Active Substance: PREDNISOLONE
     Dosage: REDUCING BY 5 MG PER WEEK
     Route: 048
  5. PREDNISOLONE. [Concomitant]
     Active Substance: PREDNISOLONE
     Dosage: DISCHARGED ON A TAPERING DOSE
     Route: 048
  6. MESALAZINE [Suspect]
     Active Substance: MESALAMINE
     Indication: CROHN^S DISEASE
     Route: 065

REACTIONS (1)
  - Myocarditis [Recovered/Resolved]
